FAERS Safety Report 8220933-8 (Version None)
Quarter: 2012Q1

REPORT INFORMATION
  Report Type: 
  Country: None (occurrence: None)
  Receive Date: 20120320
  Receipt Date: 20120309
  Transmission Date: 20120608
  Serious: Yes (Other)
  Sender: FDA-Public Use
  Company Number: FR-BRISTOL-MYERS SQUIBB COMPANY-16270266

PATIENT
  Age: 48 Year
  Sex: Female
  Weight: 85 kg

DRUGS (1)
  1. SPRYCEL [Suspect]
     Indication: CHRONIC MYELOID LEUKAEMIA
     Dosage: 1DF:100 UNIT NOS;07MAR10-05DEC12:100; RESTARTED ON 21JAN12-09FEB12:50; 10FEB12-05MAR12: 50,100.
     Dates: start: 20100307

REACTIONS (2)
  - CHYLOTHORAX [None]
  - PLEURAL EFFUSION [None]
